FAERS Safety Report 8788280 (Version 1)
Quarter: 2012Q4

REPORT INFORMATION
  Report Type: Report from Study
  Country: US (occurrence: US)
  Receive Date: 20120914
  Receipt Date: 20120914
  Transmission Date: 20130627
  Serious: No
  Sender: FDA-Public Use
  Company Number: US-VERTEX PHARMACEUTICAL INC.-AE-2012-011795

PATIENT
  Age: 62 Year
  Sex: Male
  Weight: 65.8 kg

DRUGS (9)
  1. INCIVEK [Suspect]
     Indication: HEPATITIS C
     Route: 048
     Dates: start: 20120716
  2. PEGASYS [Concomitant]
     Indication: HEPATITIS C
     Route: 058
     Dates: start: 20120716
  3. RIBASPHERE [Concomitant]
     Indication: HEPATITIS C
     Dates: start: 20120716
  4. AMLODIPINE BESYLATE [Concomitant]
  5. LISINOPRIL [Concomitant]
  6. HYDRALAZINE [Concomitant]
  7. HYDRALAZINE [Concomitant]
  8. VITAMIN D [Concomitant]
  9. CLONIDINE HYDROCHLORIDE [Concomitant]

REACTIONS (2)
  - Dizziness [Unknown]
  - Insomnia [Unknown]
